FAERS Safety Report 6779893-9 (Version None)
Quarter: 2010Q2

REPORT INFORMATION
  Report Type: 
  Country: None (occurrence: None)
  Receive Date: 20100618
  Receipt Date: 20100610
  Transmission Date: 20101027
  Serious: Yes (Other)
  Sender: FDA-Public Use
  Company Number: JP-PFIZER INC-2010068445

PATIENT
  Age: 80 Year
  Sex: Male

DRUGS (1)
  1. ESTRACYT [Suspect]
     Dosage: UNK
     Route: 048

REACTIONS (1)
  - ANGIOEDEMA [None]
